FAERS Safety Report 7783552-3 (Version None)
Quarter: 2011Q3

REPORT INFORMATION
  Report Type: 
  Country: None (occurrence: None)
  Receive Date: 20110928
  Receipt Date: 20110718
  Transmission Date: 20111222
  Serious: No
  Sender: FDA-Public Use
  Company Number: US-MYLANLABS-2011S1010484

PATIENT
  Age: 66 Year
  Sex: Female

DRUGS (7)
  1. LETROZOLE [Suspect]
     Indication: BREAST CANCER
     Route: 048
     Dates: start: 20110516, end: 20110517
  2. POTASSIUM GLUCONATE TAB [Concomitant]
  3. MULTI-VITAMIN [Concomitant]
  4. OMEGA 3 FATTY ACID [Concomitant]
  5. VITAMIN B COMPLEX CAP [Concomitant]
  6. VITAMIN D [Concomitant]
  7. CALCIUM + VITAMIN D [Concomitant]

REACTIONS (4)
  - ARTHRALGIA [None]
  - MUSCULAR WEAKNESS [None]
  - PARAESTHESIA [None]
  - JOINT STIFFNESS [None]
